FAERS Safety Report 6103166-0 (Version None)
Quarter: 2009Q1

REPORT INFORMATION
  Report Type: 
  Country: None (occurrence: None)
  Receive Date: 20090305
  Receipt Date: 20090220
  Transmission Date: 20090719
  Serious: Yes (Life-Threatening)
  Sender: FDA-Public Use
  Company Number: JP-PFIZER INC-2009166509

PATIENT

DRUGS (3)
  1. SOLU-CORTEF [Suspect]
     Dosage: UNK
     Route: 042
     Dates: start: 20090105, end: 20090105
  2. PENTCILLIN [Suspect]
     Indication: ABSCESS
     Dosage: UNK
     Route: 042
     Dates: start: 20090105, end: 20090105
  3. LACTEC [Concomitant]
     Dosage: UNK
     Route: 042
     Dates: start: 20090105

REACTIONS (2)
  - ANAPHYLACTIC SHOCK [None]
  - BODY TEMPERATURE DECREASED [None]
